FAERS Safety Report 17065430 (Version 1)
Quarter: 2019Q4

REPORT INFORMATION
  Report Type: Spontaneous
  Country: US (occurrence: US)
  Receive Date: 20191122
  Receipt Date: 20191122
  Transmission Date: 20200122
  Serious: Yes (Hospitalization)
  Sender: FDA-Public Use
  Company Number: None

PATIENT
  Age: 58 Year
  Sex: Female

DRUGS (9)
  1. ATORVASTATIN [Concomitant]
     Active Substance: ATORVASTATIN
  2. CALCIUM [Concomitant]
     Active Substance: CALCIUM
  3. VITAMIN B [Concomitant]
     Active Substance: VITAMIN B
  4. EXEMESTANE. [Suspect]
     Active Substance: EXEMESTANE
     Indication: BREAST CANCER FEMALE
     Route: 048
     Dates: start: 20180209
  5. GLUCOSAMINE [Concomitant]
     Active Substance: GLUCOSAMINE
  6. FISH OIL [Concomitant]
     Active Substance: FISH OIL
  7. CEPHALEXIN. [Concomitant]
     Active Substance: CEPHALEXIN
  8. VITAMIN D [Concomitant]
     Active Substance: VITAMIN D NOS
  9. VENLAFAXINE [Concomitant]
     Active Substance: VENLAFAXINE HYDROCHLORIDE

REACTIONS (1)
  - Breast reconstruction [None]
